FAERS Safety Report 20819803 (Version 2)
Quarter: 2022Q2

REPORT INFORMATION
  Report Type: Report from Study
  Country: US (occurrence: US)
  Receive Date: 20220512
  Receipt Date: 20220518
  Transmission Date: 20220721
  Serious: Yes (Death, Hospitalization, Other)
  Sender: FDA-Public Use
  Company Number: US-NOVARTISPH-NVSC2022US048081

PATIENT
  Age: 66 Year
  Sex: Female
  Weight: 55.3 kg

DRUGS (2)
  1. SCEMBLIX [Suspect]
     Active Substance: ASCIMINIB HYDROCHLORIDE
     Indication: Chronic myeloid leukaemia
     Dosage: 150 MG, BID
     Route: 048
     Dates: start: 20210916, end: 20220413
  2. SCEMBLIX [Suspect]
     Active Substance: ASCIMINIB HYDROCHLORIDE
     Dosage: UNK
     Route: 048
     Dates: start: 20220222, end: 20220224

REACTIONS (8)
  - Respiratory failure [Fatal]
  - Pneumonia [Fatal]
  - Leukopenia [Recovered/Resolved]
  - Pancytopenia [Unknown]
  - Neutropenia [Recovered/Resolved]
  - Thrombocytopenia [Not Recovered/Not Resolved]
  - Anaemia [Not Recovered/Not Resolved]
  - Leukocytosis [Unknown]

NARRATIVE: CASE EVENT DATE: 20211216
